FAERS Safety Report 15756305 (Version 1)
Quarter: 2018Q4

REPORT INFORMATION
  Report Type: Spontaneous
  Country: US (occurrence: US)
  Receive Date: 20181206
  Receipt Date: 20181206
  Transmission Date: 20190205
  Serious: Yes (Hospitalization)
  Sender: FDA-Public Use
  Company Number: None

PATIENT
  Sex: Male

DRUGS (5)
  1. GABAPENTIN 800MG [Concomitant]
     Active Substance: GABAPENTIN
  2. KEPPRA [Concomitant]
     Active Substance: LEVETIRACETAM
  3. STELARA [Suspect]
     Active Substance: USTEKINUMAB
     Indication: CROHN^S DISEASE
     Dosage: ?          OTHER FREQUENCY:EVERY 8 WEEKS;?
     Route: 058
     Dates: start: 20181018
  4. MULTI VITAMIN [Concomitant]
     Active Substance: VITAMINS
  5. CREON 6000UNIT [Concomitant]

REACTIONS (1)
  - Hospitalisation [None]
